FAERS Safety Report 5142552-2 (Version None)
Quarter: 2006Q4

REPORT INFORMATION
  Report Type: 
  Country: None (occurrence: None)
  Receive Date: 20061027
  Receipt Date: 20060925
  Transmission Date: 20070319
  Serious: Yes (Hospitalization)
  Sender: FDA-Public Use
  Company Number: 2006122918

PATIENT
  Sex: Female

DRUGS (2)
  1. CELEBREX [Suspect]
     Dosage: ORAL
     Route: 048
     Dates: start: 19990901
  2. VIOXX [Suspect]
     Dosage: ORAL
     Route: 048
     Dates: start: 19990816

REACTIONS (2)
  - PULMONARY EMBOLISM [None]
  - THROMBOSIS [None]
